FAERS Safety Report 5602714-4 (Version None)
Quarter: 2008Q1

REPORT INFORMATION
  Report Type: 
  Country: None (occurrence: None)
  Receive Date: 20080125
  Receipt Date: 20080110
  Transmission Date: 20080703
  Serious: Yes (Hospitalization)
  Sender: FDA-Public Use
  Company Number: AU-AMGEN-US260093

PATIENT
  Sex: Female

DRUGS (11)
  1. DARBEPOETIN ALFA [Suspect]
     Indication: ANAEMIA OF MALIGNANT DISEASE
     Route: 058
     Dates: start: 20060622, end: 20060810
  2. PEGFILGRASTIM [Suspect]
     Indication: CHEMOTHERAPY
     Route: 058
     Dates: start: 20060609, end: 20060922
  3. CYCLOPHOSPHAMIDE [Concomitant]
     Route: 042
  4. DAUNORUBICIN HCL [Concomitant]
     Route: 042
  5. VINCRISTINE [Concomitant]
     Route: 042
  6. PREDNISOLONE [Concomitant]
     Route: 048
  7. ELSPAR [Concomitant]
  8. ACETAMINOPHEN [Concomitant]
  9. ZOFRAN [Concomitant]
     Route: 042
  10. ATIVAN [Concomitant]
     Route: 048
  11. MAXOLON [Concomitant]
     Route: 042

REACTIONS (1)
  - ACUTE LYMPHOCYTIC LEUKAEMIA [None]
